FAERS Safety Report 6568573-0 (Version None)
Quarter: 2010Q1

REPORT INFORMATION
  Report Type: 
  Country: None (occurrence: None)
  Receive Date: 20100203
  Receipt Date: 20100121
  Transmission Date: 20100710
  Serious: Yes (Life-Threatening, Hospitalization)
  Sender: FDA-Public Use
  Company Number: ES-BAYER-201012914GPV

PATIENT
  Age: 10 Year
  Sex: Female
  Weight: 32 kg

DRUGS (3)
  1. ASPIRIN [Suspect]
     Indication: PHARYNGITIS
     Route: 048
     Dates: start: 19950526, end: 19950530
  2. AMOXICILLIN AND CLAVULANATE POTASSIUM [Suspect]
     Indication: PHARYNGITIS
     Route: 048
     Dates: start: 19950526, end: 19950530
  3. ACETAMINOPHEN [Suspect]
     Indication: PHARYNGITIS
     Route: 048
     Dates: start: 19950526, end: 19950530

REACTIONS (1)
  - STEVENS-JOHNSON SYNDROME [None]
